FAERS Safety Report 6037829-2 (Version None)
Quarter: 2009Q1

REPORT INFORMATION
  Report Type: 
  Country: None (occurrence: None)
  Receive Date: 20090113
  Receipt Date: 20090105
  Transmission Date: 20090719
  Serious: Yes (Hospitalization)
  Sender: FDA-Public Use
  Company Number: 09P-167-0495896-00

PATIENT
  Age: 10 Month
  Sex: Female

DRUGS (2)
  1. SYNAGIS [Suspect]
     Indication: DRUG USE FOR UNKNOWN INDICATION
     Dosage: UNK (15 MCG/KG)
     Dates: start: 20081002
  2. AUGMENTIN '125' [Concomitant]

REACTIONS (2)
  - BRONCHIOLITIS [None]
  - MALAISE [None]
